FAERS Safety Report 7454520-6 (Version None)
Quarter: 2011Q2

REPORT INFORMATION
  Report Type: 
  Country: None (occurrence: None)
  Receive Date: 20110503
  Receipt Date: 20110425
  Transmission Date: 20111010
  Serious: Yes (Hospitalization)
  Sender: FDA-Public Use
  Company Number: PHHY2011US14366

PATIENT
  Sex: Female
  Weight: 97 kg

DRUGS (4)
  1. EVISTA [Concomitant]
     Indication: OSTEOPOROSIS
     Dosage: 40 MG, QD
     Route: 048
     Dates: start: 20090601
  2. SYNTHROID [Concomitant]
     Indication: HYPOTHYROIDISM
     Route: 048
  3. LAMICTAL [Concomitant]
     Indication: EPILEPSY
     Route: 048
  4. RECLAST [Suspect]
     Indication: OSTEOPOROSIS
     Dosage: 5 MG
     Route: 042
     Dates: start: 20110114, end: 20110114

REACTIONS (4)
  - UPPER LIMB FRACTURE [None]
  - PYREXIA [None]
  - CONVULSION [None]
  - JOINT DISLOCATION [None]
